FAERS Safety Report 5373040-6 (Version None)
Quarter: 2007Q2

REPORT INFORMATION
  Report Type: 
  Country: None (occurrence: None)
  Receive Date: 20070619
  Receipt Date: 20070416
  Transmission Date: 20071010
  Serious: No
  Sender: FDA-Public Use
  Company Number: 2007US000903

PATIENT
  Age: 80 Year
  Sex: Male

DRUGS (4)
  1. VESICARE [Suspect]
     Indication: BENIGN PROSTATIC HYPERPLASIA
     Dosage: 5 MG,
     Dates: start: 20060401
  2. ASPIRIN [Concomitant]
  3. ANTIHYPERTENSIVES [Concomitant]
  4. SIMVASTATIN [Concomitant]

REACTIONS (1)
  - THERAPEUTIC RESPONSE UNEXPECTED [None]
